FAERS Safety Report 10773739 (Version 2)
Quarter: 2015Q1

REPORT INFORMATION
  Report Type: Report from Study
  Country: FR (occurrence: FR)
  Receive Date: 20150208
  Receipt Date: 20150325
  Transmission Date: 20150721
  Serious: Yes (Hospitalization)
  Sender: FDA-Public Use
  Company Number: FR-EMD SERONO-8005168

PATIENT
  Age: 47 Year
  Sex: Female

DRUGS (3)
  1. REBIF [Suspect]
     Active Substance: INTERFERON BETA-1A
     Dosage: SWITCHED TO REBIF, 2 WEEKS AGO
  2. REBIF [Suspect]
     Active Substance: INTERFERON BETA-1A
     Indication: MULTIPLE SCLEROSIS
     Dates: start: 20141015
  3. REBIF [Suspect]
     Active Substance: INTERFERON BETA-1A
     Dates: start: 20150112

REACTIONS (5)
  - Vomiting [Recovered/Resolved]
  - Multiple sclerosis relapse [Recovering/Resolving]
  - Drug intolerance [Unknown]
  - Pain [Recovering/Resolving]
  - Fatigue [Unknown]

NARRATIVE: CASE EVENT DATE: 20150112
